FAERS Safety Report 10223880 (Version 1)
Quarter: 2014Q2

REPORT INFORMATION
  Report Type: Spontaneous
  Country: US (occurrence: US)
  Receive Date: 20140609
  Receipt Date: 20140609
  Transmission Date: 20141212
  Serious: No
  Sender: FDA-Public Use
  Company Number: US-ASTRAZENECA-2014SE36927

PATIENT
  Age: 70 Year
  Sex: Female
  Weight: 51.3 kg

DRUGS (2)
  1. SYMBICORT [Suspect]
     Indication: EMPHYSEMA
     Dosage: 2 PUFFS BID 80/4.5
     Route: 055
     Dates: start: 2014
  2. SYNTHROID [Concomitant]
     Indication: HYPERPARATHYROIDISM
     Dosage: 75 MCG DAILY
     Route: 048

REACTIONS (8)
  - Epigastric discomfort [Unknown]
  - Mobility decreased [Unknown]
  - Burning sensation [Unknown]
  - Feeling jittery [Unknown]
  - Muscle spasms [Unknown]
  - Contusion [Unknown]
  - Circumstance or information capable of leading to device use error [Unknown]
  - Drug dose omission [Unknown]
